FAERS Safety Report 5057894-9 (Version None)
Quarter: 2006Q3

REPORT INFORMATION
  Report Type: 
  Country: None (occurrence: None)
  Receive Date: 20060721
  Receipt Date: 20060328
  Transmission Date: 20061208
  Serious: No
  Sender: FDA-Public Use
  Company Number: US-GLAXOSMITHKLINE-A0599365A

PATIENT
  Age: 60 Year
  Sex: Female

DRUGS (8)
  1. AVANDIA [Suspect]
     Dosage: 4MG TWICE PER DAY
     Route: 048
  2. METFORMIN [Suspect]
     Dosage: 1000MG UNKNOWN
  3. TOPROL-XL [Concomitant]
  4. DIOVAN [Concomitant]
  5. PRAVACHOL [Concomitant]
  6. ZETIA [Concomitant]
  7. PLAVIX [Concomitant]
  8. CLONIDINE [Concomitant]

REACTIONS (3)
  - INCREASED APPETITE [None]
  - THERAPEUTIC RESPONSE DECREASED [None]
  - WEIGHT INCREASED [None]
